FAERS Safety Report 9778215 (Version 2)
Quarter: 2014Q1

REPORT INFORMATION
  Report Type: Report from Study
  Country: FR (occurrence: FR)
  Receive Date: 20131223
  Receipt Date: 20140201
  Transmission Date: 20141002
  Serious: Yes (Hospitalization)
  Sender: FDA-Public Use
  Company Number: FR-ROCHE-1321572

PATIENT
  Sex: Female

DRUGS (10)
  1. MABTHERA [Suspect]
     Indication: RHEUMATOID ARTHRITIS
     Dosage: DAY 1
     Route: 042
     Dates: start: 20081216
  2. MABTHERA [Suspect]
     Dosage: DAY 15
     Route: 042
     Dates: start: 20090212
  3. MABTHERA [Suspect]
     Route: 042
     Dates: start: 20100715
  4. MABTHERA [Suspect]
     Route: 042
     Dates: start: 20100803
  5. METHOTREXATE [Concomitant]
     Dosage: RECEIVED AS A PAST DRUG
     Route: 065
  6. METHOTREXATE [Concomitant]
     Route: 065
     Dates: start: 20090212
  7. METHOTREXATE [Concomitant]
     Route: 065
     Dates: start: 20100803
  8. PREDNISONE [Concomitant]
     Route: 065
     Dates: start: 20090212
  9. PREDNISONE [Concomitant]
     Route: 065
     Dates: start: 20100803
  10. CORTANCYL [Concomitant]

REACTIONS (4)
  - Dysglobulinaemia [Not Recovered/Not Resolved]
  - Embolism [Recovered/Resolved]
  - Vomiting [Recovered/Resolved]
  - Iron deficiency anaemia [Recovering/Resolving]
